FAERS Safety Report 10166342 (Version 4)
Quarter: 2015Q4

REPORT INFORMATION
  Report Type: Spontaneous
  Country: PT (occurrence: PT)
  Receive Date: 20140512
  Receipt Date: 20151225
  Transmission Date: 20160304
  Serious: Yes (Other)
  Sender: FDA-Public Use
  Company Number: PT-ROCHE-1397143

PATIENT
  Age: 48 Year
  Sex: Male
  Weight: 77 kg

DRUGS (6)
  1. COPEGUS [Suspect]
     Active Substance: RIBAVIRIN
     Indication: HEPATITIS C VIRUS TEST POSITIVE
     Route: 048
     Dates: start: 20130403, end: 20130503
  2. INCIVO [Interacting]
     Active Substance: TELAPREVIR
     Indication: HEPATITIS C VIRUS TEST POSITIVE
     Route: 065
     Dates: start: 20130403, end: 20130626
  3. NEORECORMON [Concomitant]
     Active Substance: ERYTHROPOIETIN
     Route: 058
  4. PEGASYS [Interacting]
     Active Substance: PEGINTERFERON ALFA-2A
     Indication: HEPATITIS C VIRUS TEST POSITIVE
     Route: 058
     Dates: start: 20130403, end: 20130503
  5. PANTOPRAZOL [Concomitant]
     Active Substance: PANTOPRAZOLE SODIUM
     Indication: GASTRITIS
     Route: 048
     Dates: start: 2010
  6. NEORECORMON [Concomitant]
     Active Substance: ERYTHROPOIETIN
     Indication: PRODUCT USED FOR UNKNOWN INDICATION
     Route: 058
     Dates: start: 20130306, end: 20130427

REACTIONS (13)
  - Scab [Recovered/Resolved]
  - Rash [Recovered/Resolved]
  - Cough [Recovered/Resolved]
  - Aphthous ulcer [Recovered/Resolved]
  - Oropharyngeal discomfort [Recovered/Resolved]
  - Photophobia [Recovered/Resolved]
  - Myalgia [Recovered/Resolved]
  - Asthenia [Recovered/Resolved]
  - Tinnitus [Unknown]
  - Cerumen impaction [Unknown]
  - Mucosal discolouration [Unknown]
  - Hypoacusis [Unknown]
  - Rhinorrhoea [Recovered/Resolved]

NARRATIVE: CASE EVENT DATE: 20130403
